FAERS Safety Report 5091866-3 (Version None)
Quarter: 2006Q3

REPORT INFORMATION
  Report Type: 
  Country: None (occurrence: None)
  Receive Date: 20060829
  Receipt Date: 20060727
  Transmission Date: 20061208
  Serious: Yes (Hospitalization)
  Sender: FDA-Public Use
  Company Number: US-BRISTOL-MYERS SQUIBB COMPANY-13457965

PATIENT
  Sex: Male

DRUGS (1)
  1. ERBITUX [Suspect]
     Dosage: PRODUCT STRENGTH: 100MG/50ML
     Route: 042
     Dates: start: 20060725, end: 20060725

REACTIONS (1)
  - INFUSION RELATED REACTION [None]
